FAERS Safety Report 26048574 (Version 1)
Quarter: 2025Q4

REPORT INFORMATION
  Report Type: Spontaneous
  Country: US (occurrence: US)
  Receive Date: 20251114
  Receipt Date: 20251114
  Transmission Date: 20260117
  Serious: No
  Sender: LYNE LABORATORIES
  Company Number: US-Lyne Laboratories Inc.-2188587

PATIENT

DRUGS (9)
  1. CYPROHEPTADINE HYDROCHLORIDE [Suspect]
     Active Substance: CYPROHEPTADINE HYDROCHLORIDE
     Indication: Migraine
  2. AJOVY [Concomitant]
     Active Substance: FREMANEZUMAB-VFRM
  3. BOTOX [Concomitant]
     Active Substance: ONABOTULINUMTOXINA
  4. NARATRIPTAN [Concomitant]
     Active Substance: NARATRIPTAN HYDROCHLORIDE
  5. RIZATRIPTAN [Concomitant]
     Active Substance: RIZATRIPTAN
  6. NURTEC ODT [Concomitant]
     Active Substance: RIMEGEPANT SULFATE
  7. CANDESARTAN [Concomitant]
     Active Substance: CANDESARTAN
  8. NORTRIPTYLINE HYDROCHLORIDE [Concomitant]
     Active Substance: NORTRIPTYLINE HYDROCHLORIDE
  9. QULIPTA [Concomitant]
     Active Substance: ATOGEPANT

REACTIONS (1)
  - Drug ineffective for unapproved indication [Unknown]
